FAERS Safety Report 5856947-2 (Version None)
Quarter: 2008Q3

REPORT INFORMATION
  Report Type: 
  Country: None (occurrence: None)
  Receive Date: 20080818
  Receipt Date: 20080617
  Transmission Date: 20090109
  Serious: No
  Sender: FDA-Public Use
  Company Number: WAES 0806USA03315

PATIENT
  Age: 75 Year
  Sex: Female
  Weight: 108.4097 kg

DRUGS (15)
  1. JANUVIA [Suspect]
     Indication: TYPE 2 DIABETES MELLITUS
     Dosage: 100  MG/DAILY/PO
     Route: 048
     Dates: start: 20071221, end: 20080228
  2. ACTOS [Concomitant]
  3. DILTIAZEM CD [Concomitant]
  4. GLUCOPHAGE [Concomitant]
  5. GLUCOTROL XL [Concomitant]
  6. LASIX [Concomitant]
  7. LIPITOR [Concomitant]
  8. PREMARIN [Concomitant]
  9. PRILOSEC [Concomitant]
  10. PROVERA [Concomitant]
  11. SYNTHROID [Concomitant]
  12. ASPIRIN [Concomitant]
  13. ENALAPRIL MALEATE [Concomitant]
  14. METOPROLOL [Concomitant]
  15. VITAMINS (UNSPECIFIED) [Concomitant]

REACTIONS (1)
  - PRURITUS [None]
